FAERS Safety Report 21958169 (Version 1)
Quarter: 2023Q1

REPORT INFORMATION
  Report Type: Spontaneous
  Country: US (occurrence: US)
  Receive Date: 20230206
  Receipt Date: 20230206
  Transmission Date: 20230418
  Serious: No
  Sender: FDA-Public Use
  Company Number: US-PFIZER INC-PV202300020793

PATIENT
  Age: 65 Year
  Sex: Female

DRUGS (2)
  1. METHOTREXATE SODIUM [Suspect]
     Active Substance: METHOTREXATE SODIUM
     Dosage: UNK
  2. DOLOBID [Suspect]
     Active Substance: DIFLUNISAL
     Dosage: UNK

REACTIONS (5)
  - Asthenia [Unknown]
  - Diarrhoea [Unknown]
  - Sinusitis [Unknown]
  - Arthritis [Recovered/Resolved]
  - Swelling [Recovered/Resolved]
